FAERS Safety Report 4876623-2 (Version None)
Quarter: 2006Q1

REPORT INFORMATION
  Report Type: 
  Country: None (occurrence: None)
  Receive Date: 20060109
  Receipt Date: 20060109
  Transmission Date: 20060701
  Serious: Yes (Hospitalization)
  Sender: FDA-Public Use
  Company Number: None

PATIENT
  Age: 62 Year
  Sex: Female
  Weight: 57.74 kg

DRUGS (4)
  1. IRESSA [Suspect]
     Indication: LUNG ADENOCARCINOMA
     Dosage: 250MG  ONE PER DAY PO
     Route: 048
     Dates: start: 20051108, end: 20051229
  2. PEROCT [Concomitant]
  3. NEXIUM [Concomitant]
  4. KETORALAC [Concomitant]

REACTIONS (5)
  - ACQUIRED OESOPHAGEAL WEB [None]
  - DYSPHAGIA [None]
  - NERVOUS SYSTEM DISORDER [None]
  - ORAL INTAKE REDUCED [None]
  - PARAESTHESIA [None]
